FAERS Safety Report 10440990 (Version 1)
Quarter: 2014Q3

REPORT INFORMATION
  Report Type: Spontaneous
  Country: US (occurrence: None)
  Receive Date: 20140905
  Receipt Date: 20140905
  Transmission Date: 20150326
  Serious: Yes (Other)
  Sender: FDA-Public Use
  Company Number: None

PATIENT
  Age: 64 Year
  Sex: Female
  Weight: 100.7 kg

DRUGS (1)
  1. SIMVASTATIN. [Suspect]
     Active Substance: SIMVASTATIN
     Indication: BLOOD CHOLESTEROL INCREASED
     Dosage: 1 PILL DAILY, ONCE DAILY, TAKEN BY MOUTH
     Route: 048
     Dates: start: 20140801, end: 20140820

REACTIONS (6)
  - Nightmare [None]
  - Vomiting [None]
  - Alopecia [None]
  - Influenza like illness [None]
  - Arthralgia [None]
  - Fatigue [None]

NARRATIVE: CASE EVENT DATE: 20140801
